FAERS Safety Report 7365417-4 (Version None)
Quarter: 2011Q1

REPORT INFORMATION
  Report Type: 
  Country: None (occurrence: None)
  Receive Date: 20110315
  Receipt Date: 20110315
  Transmission Date: 20110831
  Serious: Yes (Life-Threatening, Hospitalization, Disabling)
  Sender: FDA-Public Use
  Company Number: None

PATIENT
  Age: 63 Year
  Sex: Male
  Weight: 81.6475 kg

DRUGS (1)
  1. AMIODARONE HCL [Suspect]
     Dates: start: 20100122

REACTIONS (8)
  - SWOLLEN TONGUE [None]
  - VASCULITIS [None]
  - RASH [None]
  - HEPATIC FAILURE [None]
  - WHEEZING [None]
  - SEPTIC SHOCK [None]
  - TRISMUS [None]
  - RENAL FAILURE [None]
